FAERS Safety Report 10029790 (Version 1)
Quarter: 2014Q1

REPORT INFORMATION
  Report Type: Spontaneous
  Country: US (occurrence: None)
  Receive Date: 20140319
  Receipt Date: 20140319
  Transmission Date: 20141002
  Serious: Yes (Other)
  Sender: FDA-Public Use
  Company Number: 2235888

PATIENT
  Age: 44 Year
  Sex: Female
  Weight: 119 kg

DRUGS (6)
  1. OXALIPLATIN [Suspect]
     Indication: RECTAL CANCER
     Dosage: 1 DAY, (NOT OTHERWISE SPECIFIED)
     Route: 042
     Dates: start: 20140124, end: 20140124
  2. ALOXI [Suspect]
     Indication: NAUSEA
     Route: 042
     Dates: start: 20140124, end: 20140124
  3. EMEND [Suspect]
     Indication: NAUSEA
     Route: 042
     Dates: start: 20140124, end: 20140124
  4. PEPCID [Suspect]
     Indication: DRUG THERAPY
     Route: 042
     Dates: start: 20140124, end: 20140124
  5. LEUCOVORIN [Suspect]
     Route: 042
     Dates: start: 20140124, end: 20140124
  6. 5-FU [Suspect]
     Indication: CHEMOTHERAPY
     Route: 042
     Dates: start: 20140124, end: 20140124

REACTIONS (2)
  - Hypertension [None]
  - Drug hypersensitivity [None]
